FAERS Safety Report 7502074-8 (Version None)
Quarter: 2011Q2

REPORT INFORMATION
  Report Type: 
  Country: None (occurrence: None)
  Receive Date: 20110525
  Receipt Date: 20101022
  Transmission Date: 20111010
  Serious: No
  Sender: FDA-Public Use
  Company Number: A0888313A

PATIENT

DRUGS (1)
  1. VENTOLIN [Suspect]

REACTIONS (1)
  - DRUG SCREEN POSITIVE [None]
